FAERS Safety Report 6295041-6 (Version None)
Quarter: 2009Q3

REPORT INFORMATION
  Report Type: 
  Country: None (occurrence: None)
  Receive Date: 20090731
  Receipt Date: 20090731
  Transmission Date: 20100115
  Serious: Yes (Life-Threatening, Hospitalization)
  Sender: FDA-Public Use
  Company Number: None

PATIENT
  Age: 27 Year
  Sex: Female
  Weight: 63.9572 kg

DRUGS (2)
  1. HUMIRA [Suspect]
     Indication: CROHN'S DISEASE
     Dosage: 40 MG / 0.8 ML X 4 WHEN STARTING PO
     Route: 048
     Dates: start: 20090702, end: 20090702
  2. HUMIRA [Suspect]
     Indication: CROHN'S DISEASE
     Dosage: 40 MG / 0.8 ML X 2 TWO WEEKS LATER PO
     Route: 048
     Dates: start: 20090716, end: 20090716

REACTIONS (5)
  - CHEST PAIN [None]
  - DYSPNOEA [None]
  - INSOMNIA [None]
  - NECK PAIN [None]
  - TACHYCARDIA [None]
